FAERS Safety Report 5595358-4 (Version None)
Quarter: 2008Q1

REPORT INFORMATION
  Report Type: 
  Country: None (occurrence: None)
  Receive Date: 20080117
  Receipt Date: 20080109
  Transmission Date: 20080703
  Serious: Yes (Other)
  Sender: FDA-Public Use
  Company Number: US-PFIZER INC-2008003350

PATIENT
  Age: 69 Year
  Sex: Female
  Weight: 67.5 kg

DRUGS (5)
  1. SUTENT [Suspect]
     Route: 048
  2. ATENOLOL [Concomitant]
     Dosage: DAILY DOSE:50MG
     Route: 048
  3. TRIAMTERENE AND HYDROCHLOROTHIAZIDE [Concomitant]
     Dosage: TEXT:75/50 MG/D
     Route: 048
  4. AMLODIPINE [Concomitant]
     Dosage: DAILY DOSE:2.5MG
     Route: 048
  5. VITAMIN CAP [Concomitant]

REACTIONS (1)
  - NEPHRITIS ALLERGIC [None]
